FAERS Safety Report 23015219 (Version 4)
Quarter: 2025Q2

REPORT INFORMATION
  Report Type: Spontaneous
  Country: US (occurrence: US)
  Receive Date: 20231002
  Receipt Date: 20250620
  Transmission Date: 20250717
  Serious: No
  Sender: SANOFI AVENTIS
  Company Number: US-SA-2023SA295160

PATIENT
  Age: 63 Year
  Sex: Female

DRUGS (2)
  1. DUPIXENT [Suspect]
     Active Substance: DUPILUMAB
     Indication: Dermatitis atopic
     Route: 058
     Dates: start: 20230519, end: 20230519
  2. DUPIXENT [Suspect]
     Active Substance: DUPILUMAB
     Indication: Eczema
     Dosage: 300 MG, QOW
     Route: 058
     Dates: start: 202306

REACTIONS (7)
  - Musculoskeletal stiffness [Unknown]
  - Lacrimation increased [Not Recovered/Not Resolved]
  - Skin irritation [Unknown]
  - Skin swelling [Unknown]
  - Rash pruritic [Recovered/Resolved]
  - Pruritus [Unknown]
  - Skin burning sensation [Recovered/Resolved]

NARRATIVE: CASE EVENT DATE: 20230101
